FAERS Safety Report 13504064 (Version 9)
Quarter: 2018Q3

REPORT INFORMATION
  Report Type: Report from Study
  Country: TW (occurrence: TW)
  Receive Date: 20170502
  Receipt Date: 20180907
  Transmission Date: 20181010
  Serious: Yes (Life-Threatening, Hospitalization, Other)
  Sender: FDA-Public Use
  Company Number: TW-INCYTE CORPORATION-2017IN003274

PATIENT

DRUGS (30)
  1. AMIODARONE HCL [Concomitant]
     Active Substance: AMIODARONE HYDROCHLORIDE
     Indication: ATRIAL FIBRILLATION
     Dosage: 400 MG, UNK 200?400 MG
     Route: 048
     Dates: start: 20170418, end: 20170420
  2. AMIODARONE HCL [Concomitant]
     Active Substance: AMIODARONE HYDROCHLORIDE
     Dosage: 300 MG, UNK, 150?300 MG
     Route: 042
     Dates: start: 20180212, end: 20180213
  3. DABIGATRAN [Concomitant]
     Active Substance: DABIGATRAN
     Indication: ATRIAL FIBRILLATION
     Dosage: 1 DF, UNK
     Route: 048
     Dates: start: 20140512, end: 20170817
  4. DILTIAZEM. [Concomitant]
     Active Substance: DILTIAZEM
     Indication: CARDIAC FAILURE
     Dosage: 25 MG, UNK
     Route: 042
     Dates: start: 20180211, end: 20180212
  5. DILTIAZEM. [Concomitant]
     Active Substance: DILTIAZEM
     Dosage: 30 MG, UNK
     Route: 048
     Dates: start: 20180213, end: 20180221
  6. CHLORPHENAMINE MALEATE [Concomitant]
     Active Substance: CHLORPHENIRAMINE MALEATE
     Indication: PROPHYLAXIS
     Dosage: 5 MG, UNK
     Route: 042
     Dates: start: 20170419, end: 20170419
  7. BISOPROLOL [Concomitant]
     Active Substance: BISOPROLOL
     Indication: CARDIAC FAILURE
     Dosage: 1 DF, UNK
     Route: 048
     Dates: start: 20140519, end: 20170817
  8. BISOPROLOL [Concomitant]
     Active Substance: BISOPROLOL
     Dosage: 2.5 MG, UNK
     Route: 048
     Dates: start: 20180503, end: 20180531
  9. FUROSEMIDE. [Concomitant]
     Active Substance: FUROSEMIDE
     Indication: HYPERTENSION
     Dosage: 0.5 DF, UNK
     Route: 048
     Dates: start: 20140519, end: 20170817
  10. IWELL [Concomitant]
     Indication: PROPHYLAXIS
     Dosage: 1 DF, UNK
     Route: 048
     Dates: start: 20010301, end: 20170417
  11. LEVETIRACETAM. [Concomitant]
     Active Substance: LEVETIRACETAM
     Indication: ATRIAL FIBRILLATION
     Dosage: 500 MG, UNK
     Route: 048
     Dates: start: 20180212, end: 20180214
  12. HYDROXYUREA. [Concomitant]
     Active Substance: HYDROXYUREA
     Indication: MYELOPROLIFERATIVE NEOPLASM
     Dosage: 500 MG, UNK
     Route: 048
     Dates: start: 20070809
  13. COLCHICINE. [Concomitant]
     Active Substance: COLCHICINE
     Dosage: 0.5 MG, UNK
     Route: 048
     Dates: start: 20170807, end: 20171009
  14. ACETYLCYSTEINE. [Concomitant]
     Active Substance: ACETYLCYSTEINE
     Indication: PROPHYLAXIS
     Dosage: 600 MG, UNK
     Route: 048
     Dates: start: 20180212, end: 20180221
  15. CONSLIFE [Concomitant]
     Indication: PROPHYLAXIS
     Dosage: 2 DF, UNK
     Route: 048
     Dates: start: 20180214, end: 20180221
  16. NALBUPHINE [Concomitant]
     Active Substance: NALBUPHINE
     Indication: PROPHYLAXIS
     Dosage: 10 MG, UNK
     Route: 042
     Dates: start: 20180211, end: 20180211
  17. AMIODARONE HCL [Concomitant]
     Active Substance: AMIODARONE HYDROCHLORIDE
     Dosage: 100 MG, UNK
     Route: 048
     Dates: start: 20170422, end: 20170422
  18. JAKAVI [Suspect]
     Active Substance: RUXOLITINIB
     Dosage: 10 MG, UNK
     Route: 048
     Dates: start: 20170509
  19. DEXLANSOPRAZOLE [Concomitant]
     Active Substance: DEXLANSOPRAZOLE
     Indication: PROPHYLAXIS
     Dosage: 60 MG, UNK
     Route: 048
     Dates: start: 20170204, end: 20170214
  20. FAMOTIDINE. [Concomitant]
     Active Substance: FAMOTIDINE
     Indication: PROPHYLAXIS
     Dosage: 20 MG, UNK
     Route: 042
     Dates: start: 20180211, end: 20180213
  21. AMIODARONE HCL [Concomitant]
     Active Substance: AMIODARONE HYDROCHLORIDE
     Dosage: 200 MG, UNK
     Route: 055
     Dates: start: 20180212, end: 20180214
  22. APIXABAN [Concomitant]
     Active Substance: APIXABAN
     Indication: CARDIAC FAILURE
     Dosage: 2.5 MG, UNK
     Route: 048
     Dates: start: 20170423, end: 20170501
  23. ESOMEPRAZOLE [Concomitant]
     Active Substance: ESOMEPRAZOLE
     Indication: PROPHYLAXIS
     Dosage: 40 MG, UNK
     Route: 048
     Dates: start: 20170417, end: 20170418
  24. FEBUXOSTAT. [Concomitant]
     Active Substance: FEBUXOSTAT
     Indication: GOUT
     Dosage: 0.5 DF, UNK
     Route: 048
     Dates: start: 20160523, end: 20170417
  25. VALSARTAN. [Concomitant]
     Active Substance: VALSARTAN
     Indication: HYPERTENSION
     Dosage: 1 DF, UNK
     Route: 048
     Dates: start: 20160922, end: 20170417
  26. JAKAVI [Suspect]
     Active Substance: RUXOLITINIB
     Indication: MYELOFIBROSIS
     Dosage: 10 MG, UNK
     Route: 048
     Dates: start: 20161226, end: 20170417
  27. AMIODARONE HCL [Concomitant]
     Active Substance: AMIODARONE HYDROCHLORIDE
     Dosage: 200 MG, UNK
     Route: 048
     Dates: start: 20170421, end: 20170421
  28. COLCHICINE. [Concomitant]
     Active Substance: COLCHICINE
     Indication: GOUT
     Dosage: 0.5 MG, UNK
     Route: 048
     Dates: start: 20170612, end: 20170703
  29. HYDROXYUREA. [Concomitant]
     Active Substance: HYDROXYUREA
     Dosage: 500 MG, UNK
     Route: 048
     Dates: start: 20170612, end: 20171002
  30. MAGNESIUM OXIDE. [Concomitant]
     Active Substance: MAGNESIUM OXIDE
     Indication: PROPHYLAXIS
     Dosage: 250 MG, UNK
     Route: 048
     Dates: start: 20170824, end: 20171116

REACTIONS (43)
  - Atrial fibrillation [Not Recovered/Not Resolved]
  - Haemodynamic instability [Not Recovered/Not Resolved]
  - Pyrexia [Not Recovered/Not Resolved]
  - Hypotension [Unknown]
  - Hepatic cyst [Unknown]
  - Pneumobilia [Unknown]
  - Stress ulcer [Unknown]
  - Fluid overload [Unknown]
  - Cerebral haemorrhage [Recovering/Resolving]
  - Pleural effusion [Unknown]
  - Pneumonia [Recovered/Resolved]
  - Injection site swelling [Recovered/Resolved]
  - Salmonella bacteraemia [Recovered/Resolved]
  - Stridor [Unknown]
  - Tachypnoea [Unknown]
  - Altered state of consciousness [Recovering/Resolving]
  - Cholelithiasis [Unknown]
  - Cough [Unknown]
  - Mitral valve calcification [Unknown]
  - Musculoskeletal stiffness [Unknown]
  - Pain [Not Recovered/Not Resolved]
  - Injection site phlebitis [Recovered/Resolved]
  - Procalcitonin increased [Unknown]
  - Hyperglycaemia [Recovered/Resolved]
  - Tenderness [Unknown]
  - Soft tissue infection [Not Recovered/Not Resolved]
  - Splenomegaly [Unknown]
  - Thrombocytopenia [Recovered/Resolved]
  - Myelofibrosis [Recovered/Resolved]
  - Leukocytosis [Unknown]
  - Palpitations [Unknown]
  - Tachycardia [Unknown]
  - Anaemia [Recovered/Resolved]
  - Anaemia [Recovered/Resolved]
  - Aortic stenosis [Unknown]
  - Anaemia macrocytic [Not Recovered/Not Resolved]
  - Bile duct cancer [Unknown]
  - Injection site erythema [Recovered/Resolved]
  - Injection site pain [Recovered/Resolved]
  - Liver disorder [Unknown]
  - Dizziness [Unknown]
  - Acute respiratory failure [Recovered/Resolved]
  - Gastrointestinal haemorrhage [Recovered/Resolved]

NARRATIVE: CASE EVENT DATE: 20170202
